FAERS Safety Report 20392997 (Version 1)
Quarter: 2022Q1

REPORT INFORMATION
  Report Type: Report from Study
  Country: CA (occurrence: CA)
  Receive Date: 20220128
  Receipt Date: 20220128
  Transmission Date: 20220423
  Serious: Yes (Death)
  Sender: FDA-Public Use
  Company Number: CA-NOVARTISPH-NVSC2021CA176694

PATIENT
  Age: 59 Year
  Sex: Female

DRUGS (4)
  1. MONTELUKAST [Suspect]
     Active Substance: MONTELUKAST SODIUM
     Indication: Asthma
     Dosage: 10 MG, QD
     Route: 048
     Dates: start: 2021
  2. VENTOLIN [Concomitant]
     Active Substance: ALBUTEROL SULFATE
     Indication: Asthma
     Dosage: UNK UNK, PRN
     Route: 055
  3. SPIRIVA [Concomitant]
     Active Substance: TIOTROPIUM BROMIDE MONOHYDRATE
     Indication: Asthma
     Dosage: 2 DF, QD
     Route: 055
  4. FAMOTIDINE [Concomitant]
     Active Substance: FAMOTIDINE
     Indication: Productive cough
     Dosage: 1 DF, QD
     Route: 048

REACTIONS (4)
  - Death [Fatal]
  - Blood immunoglobulin E increased [Unknown]
  - Mite allergy [Unknown]
  - Cockroach allergy [Unknown]

NARRATIVE: CASE EVENT DATE: 20210127
